FAERS Safety Report 9530164 (Version 1)
Quarter: 2013Q3

REPORT INFORMATION
  Report Type: Spontaneous
  Country: US (occurrence: US)
  Receive Date: 20130917
  Receipt Date: 20130917
  Transmission Date: 20140515
  Serious: Yes (Life-Threatening)
  Sender: FDA-Public Use
  Company Number: CHPA2013US014282

PATIENT
  Sex: Male

DRUGS (1)
  1. NODOZ [Suspect]
     Indication: SOMNOLENCE
     Dosage: UNK, UNK
     Route: 048
     Dates: end: 200201

REACTIONS (4)
  - Feeling abnormal [Unknown]
  - Hyperhidrosis [Unknown]
  - Vomiting [Unknown]
  - Dizziness [Unknown]
